FAERS Safety Report 7624626-7 (Version None)
Quarter: 2011Q3

REPORT INFORMATION
  Report Type: 
  Country: None (occurrence: None)
  Receive Date: 20110720
  Receipt Date: 20110719
  Transmission Date: 20111222
  Serious: Yes (Other)
  Sender: FDA-Public Use
  Company Number: US-PFIZER INC-2011163864

PATIENT
  Sex: Female
  Weight: 86.621 kg

DRUGS (7)
  1. METOPROLOL [Concomitant]
     Dosage: 25 MG, 1X/DAY
  2. LIPITOR [Concomitant]
     Dosage: 20 MG, 1X/DAY
  3. DEPO-MEDROL [Suspect]
     Indication: ARTHRALGIA
     Dosage: 40 MG/ML, UNK
     Dates: start: 20110707
  4. FELODIPINE [Concomitant]
     Dosage: 10 MG, 1X/DAY
  5. PLAQUENIL [Concomitant]
     Dosage: 200 MG, UNK
  6. FOLIC ACID [Concomitant]
     Dosage: 800 UG, 1X/DAY
  7. OMEPRAZOLE [Concomitant]
     Dosage: 20 MG, UNK

REACTIONS (5)
  - DYSPNOEA [None]
  - OEDEMA PERIPHERAL [None]
  - PAIN IN EXTREMITY [None]
  - MALAISE [None]
  - ABDOMINAL DISTENSION [None]
